FAERS Safety Report 4340093-3 (Version None)
Quarter: 2004Q2

REPORT INFORMATION
  Report Type: 
  Country: None (occurrence: None)
  Receive Date: 20040415
  Receipt Date: 20040415
  Transmission Date: 20050107
  Serious: Yes (Other)
  Sender: FDA-Public Use
  Company Number: None

PATIENT
  Age: 38 Year
  Sex: Female
  Weight: 50.3493 kg

DRUGS (2)
  1. ZICAM ZINCUM GLUCONICUM MATRIXX INITIATIVE [Suspect]
     Indication: NASAL CONGESTION
     Dosage: TWICE DAILY NASAL
     Route: 045
     Dates: start: 20040220, end: 20040226
  2. ZICAM ZINCUM GLUCONICUM MATRIXX INITIATIVE [Suspect]
     Indication: NASOPHARYNGITIS
     Dosage: TWICE DAILY NASAL
     Route: 045
     Dates: start: 20040220, end: 20040226

REACTIONS (2)
  - AGEUSIA [None]
  - ANOSMIA [None]
